FAERS Safety Report 11409837 (Version 1)
Quarter: 2015Q3

REPORT INFORMATION
  Report Type: Spontaneous
  Country: US (occurrence: US)
  Receive Date: 20150824
  Receipt Date: 20150824
  Transmission Date: 20151125
  Serious: No
  Sender: FDA-Public Use
  Company Number: US-ASTRAZENECA-2015SE79667

PATIENT
  Sex: Female

DRUGS (16)
  1. ALDARA [Suspect]
     Active Substance: IMIQUIMOD
     Route: 065
  2. NEOSPORIN [Suspect]
     Active Substance: BACITRACIN ZINC\NEOMYCIN SULFATE\POLYMYXIN B SULFATE
     Dosage: UNK
     Route: 065
  3. CIMZIA [Suspect]
     Active Substance: CERTOLIZUMAB PEGOL
     Route: 065
  4. DEXILANT [Suspect]
     Active Substance: DEXLANSOPRAZOLE
     Route: 065
  5. NEXIUM [Suspect]
     Active Substance: ESOMEPRAZOLE MAGNESIUM
     Dosage: UNK
     Route: 048
  6. ERYTHROMYCIN. [Suspect]
     Active Substance: ERYTHROMYCIN
     Dosage: UNK
     Route: 065
  7. BACITRACIN. [Suspect]
     Active Substance: BACITRACIN
     Dosage: UNK
     Route: 065
  8. METHADONE [Suspect]
     Active Substance: METHADONE HYDROCHLORIDE
     Route: 065
  9. NEURONTIN [Suspect]
     Active Substance: GABAPENTIN
     Dosage: UNK
     Route: 065
  10. MOTRIN [Suspect]
     Active Substance: IBUPROFEN
     Dosage: UNK
     Route: 065
  11. SAVELLA [Suspect]
     Active Substance: MILNACIPRAN HYDROCHLORIDE
     Route: 065
  12. EPINEPHRINE. [Suspect]
     Active Substance: EPINEPHRINE
     Dosage: UNK
     Route: 065
  13. PLAQUENIL [Suspect]
     Active Substance: HYDROXYCHLOROQUINE SULFATE
     Dosage: UNK
     Route: 065
  14. ARAVA [Suspect]
     Active Substance: LEFLUNOMIDE
     Route: 065
  15. CYMBALTA [Suspect]
     Active Substance: DULOXETINE HYDROCHLORIDE
     Dosage: UNK
     Route: 065
  16. LYRICA [Suspect]
     Active Substance: PREGABALIN
     Dosage: UNK
     Route: 065

REACTIONS (1)
  - Drug hypersensitivity [Unknown]
